FAERS Safety Report 13724500 (Version 1)
Quarter: 2017Q3

REPORT INFORMATION
  Report Type: Spontaneous
  Country: FR (occurrence: FR)
  Receive Date: 20170706
  Receipt Date: 20170706
  Transmission Date: 20171127
  Serious: Yes (Other)
  Sender: FDA-Public Use
  Company Number: FR-PFIZER INC-2017287264

PATIENT
  Age: 85 Year
  Sex: Female

DRUGS (2)
  1. LERCAN [Concomitant]
     Active Substance: LERCANIDIPINE
     Indication: HYPERTENSION
     Dosage: 20 MG, 1X/DAY
     Route: 048
  2. INLYTA [Suspect]
     Active Substance: AXITINIB
     Indication: RENAL CANCER METASTATIC
     Dosage: 2 MG, 2X/DAY
     Route: 048
     Dates: start: 201612, end: 20170524

REACTIONS (1)
  - Aortic dissection [Not Recovered/Not Resolved]

NARRATIVE: CASE EVENT DATE: 20170524
